FAERS Safety Report 4879058-1 (Version None)
Quarter: 2006Q1

REPORT INFORMATION
  Report Type: 
  Country: None (occurrence: None)
  Receive Date: 20060112
  Receipt Date: 20060106
  Transmission Date: 20060701
  Serious: Yes (Hospitalization)
  Sender: FDA-Public Use
  Company Number: FR-BRISTOL-MYERS SQUIBB COMPANY-13240593

PATIENT
  Age: 79 Year
  Sex: Female

DRUGS (5)
  1. SINEMET [Suspect]
     Indication: PARKINSON'S DISEASE
     Route: 048
  2. IMOVANE [Concomitant]
     Indication: SLEEP DISORDER
     Dates: end: 20050916
  3. CALCIDOSE [Concomitant]
     Indication: OSTEOPOROSIS
     Dosage: TAB
     Route: 048
  4. THERALENE [Concomitant]
     Dates: end: 20050922
  5. LEXOMIL [Concomitant]
     Indication: ANXIETY
     Route: 048

REACTIONS (3)
  - FACE INJURY [None]
  - FALL [None]
  - ORTHOSTATIC HYPOTENSION [None]
